FAERS Safety Report 4739811-1 (Version None)
Quarter: 2005Q3

REPORT INFORMATION
  Report Type: 
  Country: None (occurrence: None)
  Receive Date: 20050810
  Receipt Date: 20050516
  Transmission Date: 20060218
  Serious: No
  Sender: FDA-Public Use
  Company Number: US-GLAXOSMITHKLINE-A0558776A

PATIENT
  Age: 60 Year
  Sex: Female

DRUGS (1)
  1. PAROXETINE HCL [Suspect]
     Indication: PANIC DISORDER
     Route: 048

REACTIONS (1)
  - RASH [None]
